FAERS Safety Report 5596606-7 (Version None)
Quarter: 2008Q1

REPORT INFORMATION
  Report Type: 
  Country: None (occurrence: None)
  Receive Date: 20080118
  Receipt Date: 20080109
  Transmission Date: 20080703
  Serious: Yes (Other)
  Sender: FDA-Public Use
  Company Number: US-PFIZER INC-2007102174

PATIENT
  Sex: Female
  Weight: 88.5 kg

DRUGS (13)
  1. LYRICA [Suspect]
     Indication: FIBROMYALGIA
     Route: 048
  2. LYRICA [Suspect]
     Indication: NEUROPATHY PERIPHERAL
  3. LYRICA [Suspect]
     Indication: LUMBAR RADICULOPATHY
  4. OXYCONTIN [Concomitant]
  5. ROZEREM [Concomitant]
  6. LEVOTHYROXINE SODIUM [Concomitant]
  7. GUAIFENESIN [Concomitant]
  8. ADVAIR DISKUS 100/50 [Concomitant]
  9. FLONASE [Concomitant]
  10. MONTELUKAST SODIUM [Concomitant]
  11. VYTORIN [Concomitant]
  12. PERCOCET [Concomitant]
  13. DRUG, UNSPECIFIED [Concomitant]

REACTIONS (4)
  - CONTUSION [None]
  - FATIGUE [None]
  - NARCOLEPSY [None]
  - ROAD TRAFFIC ACCIDENT [None]
